FAERS Safety Report 7235719-0 (Version None)
Quarter: 2011Q1

REPORT INFORMATION
  Report Type: 
  Country: None (occurrence: None)
  Receive Date: 20110111
  Receipt Date: 20101227
  Transmission Date: 20110831
  Serious: Yes (Disabling)
  Sender: FDA-Public Use
  Company Number: 011811

PATIENT
  Age: 54 Year
  Sex: Male
  Weight: 120 kg

DRUGS (1)
  1. PLETAL [Suspect]
     Indication: PERIPHERAL ARTERIAL OCCLUSIVE DISEASE
     Dosage: MG, BID, ORAL
     Route: 048
     Dates: start: 20100714, end: 20100831

REACTIONS (1)
  - GYNAECOMASTIA [None]
